FAERS Safety Report 5519906-5 (Version None)
Quarter: 2007Q4

REPORT INFORMATION
  Report Type: 
  Country: None (occurrence: None)
  Receive Date: 20071116
  Receipt Date: 20071018
  Transmission Date: 20080405
  Serious: No
  Sender: FDA-Public Use
  Company Number: A0688501A

PATIENT
  Age: 79 Year
  Sex: Female
  Weight: 61.4 kg

DRUGS (2)
  1. COREG CR [Suspect]
     Indication: DRUG USE FOR UNKNOWN INDICATION
     Dosage: 20MG PER DAY
     Route: 048
     Dates: start: 20070901
  2. LEVOXYL [Concomitant]

REACTIONS (1)
  - WEIGHT INCREASED [None]
